FAERS Safety Report 4920426-7 (Version None)
Quarter: 2006Q1

REPORT INFORMATION
  Report Type: 
  Country: None (occurrence: None)
  Receive Date: 20060223
  Receipt Date: 20060202
  Transmission Date: 20060701
  Serious: Yes (Hospitalization)
  Sender: FDA-Public Use
  Company Number: US-MERCK-0602USA00529

PATIENT
  Age: 84 Year
  Sex: Female
  Weight: 75 kg

DRUGS (7)
  1. VIOXX [Suspect]
     Indication: ARTHRITIS
     Route: 048
     Dates: start: 19990823, end: 20041001
  2. VIOXX [Suspect]
     Route: 048
     Dates: start: 19990823, end: 20041001
  3. TYLENOL [Concomitant]
     Route: 065
  4. PRILOSEC [Concomitant]
     Route: 065
  5. DOXEPIN HYDROCHLORIDE [Concomitant]
     Route: 065
  6. DITROPAN [Concomitant]
     Route: 065
  7. DITROPAN [Concomitant]
     Route: 065

REACTIONS (64)
  - ACUTE MYOCARDIAL INFARCTION [None]
  - ALLERGIC SINUSITIS [None]
  - ANAEMIA [None]
  - ANGINA UNSTABLE [None]
  - AORTIC CALCIFICATION [None]
  - ARTERIOSCLEROSIS CORONARY ARTERY [None]
  - ARTHRALGIA [None]
  - ASTHENIA [None]
  - ATRIAL FIBRILLATION [None]
  - ATRIAL FLUTTER [None]
  - BACK PAIN [None]
  - BALANCE DISORDER [None]
  - BRONCHITIS [None]
  - CARDIAC FAILURE CONGESTIVE [None]
  - CARDIOGENIC SHOCK [None]
  - CHEST PAIN [None]
  - CHRONIC OBSTRUCTIVE PULMONARY DISEASE [None]
  - COAGULOPATHY [None]
  - CONFUSIONAL STATE [None]
  - CONSTIPATION [None]
  - CORONARY ARTERY DISEASE [None]
  - CORONARY ARTERY OCCLUSION [None]
  - CORONARY ARTERY STENOSIS [None]
  - DEAFNESS [None]
  - DEAFNESS UNILATERAL [None]
  - DEHYDRATION [None]
  - DEMENTIA ALZHEIMER'S TYPE [None]
  - DIARRHOEA [None]
  - DIZZINESS [None]
  - DYSPNOEA [None]
  - EXOSTOSIS [None]
  - FALL [None]
  - FLANK PAIN [None]
  - FUNGAL INFECTION [None]
  - GAIT DISTURBANCE [None]
  - GRANULOMA [None]
  - HYPERSENSITIVITY [None]
  - HYPOACUSIS [None]
  - INSOMNIA [None]
  - LIMB INJURY [None]
  - LOW DENSITY LIPOPROTEIN INCREASED [None]
  - MICROCYTOSIS [None]
  - MITRAL VALVE INCOMPETENCE [None]
  - MULTIPLE ALLERGIES [None]
  - NASOPHARYNGITIS [None]
  - NERVOUSNESS [None]
  - ORAL CANDIDIASIS [None]
  - PANIC ATTACK [None]
  - PANIC REACTION [None]
  - PHARYNGOLARYNGEAL PAIN [None]
  - PROCEDURAL PAIN [None]
  - PRODUCTIVE COUGH [None]
  - PYELONEPHRITIS [None]
  - RENAL COLIC [None]
  - RHINITIS ALLERGIC [None]
  - SINUS CONGESTION [None]
  - SINUS TACHYCARDIA [None]
  - SPINAL FRACTURE [None]
  - SPLEEN DISORDER [None]
  - TACHYCARDIA [None]
  - TRACHEOBRONCHITIS [None]
  - UPPER RESPIRATORY TRACT CONGESTION [None]
  - URINARY INCONTINENCE [None]
  - WRIST FRACTURE [None]
